FAERS Safety Report 7755315-6 (Version None)
Quarter: 2011Q3

REPORT INFORMATION
  Report Type: 
  Country: None (occurrence: None)
  Receive Date: 20110916
  Receipt Date: 20110912
  Transmission Date: 20111222
  Serious: Yes (Hospitalization, Other)
  Sender: FDA-Public Use
  Company Number: US-AMGEN-USASP2011034797

PATIENT
  Age: 73 Year
  Sex: Male
  Weight: 100.68 kg

DRUGS (1)
  1. NPLATE [Suspect]
     Indication: IDIOPATHIC THROMBOCYTOPENIC PURPURA
     Dosage: 205.44 MUG, QWK
     Route: 058
     Dates: start: 20110323, end: 20110712

REACTIONS (2)
  - PLATELET COUNT DECREASED [None]
  - DRUG INEFFECTIVE [None]
